FAERS Safety Report 10217027 (Version 1)
Quarter: 2014Q2

REPORT INFORMATION
  Report Type: Spontaneous
  Country: AU (occurrence: AU)
  Receive Date: 20140604
  Receipt Date: 20140604
  Transmission Date: 20141212
  Serious: Yes (Other)
  Sender: FDA-Public Use
  Company Number: PHHY2014AU065128

PATIENT
  Age: 70 Year
  Sex: Female

DRUGS (1)
  1. ATORVASTATIN SANDOZ [Suspect]
     Dosage: 40 MG, UNK
     Route: 048
     Dates: start: 201401

REACTIONS (3)
  - Arrhythmia [Unknown]
  - Heart rate irregular [Unknown]
  - Palpitations [Unknown]
